FAERS Safety Report 7305346-5 (Version None)
Quarter: 2011Q1

REPORT INFORMATION
  Report Type: 
  Country: None (occurrence: None)
  Receive Date: 20110222
  Receipt Date: 20110210
  Transmission Date: 20110831
  Serious: Yes (Hospitalization)
  Sender: FDA-Public Use
  Company Number: PHHY2011TW10819

PATIENT
  Sex: Male
  Weight: 67 kg

DRUGS (1)
  1. ALISKIREN [Suspect]
     Indication: HYPERTENSION
     Dosage: 150 MG, UNK
     Route: 048
     Dates: start: 20101112

REACTIONS (6)
  - CEREBRAL ARTERIOSCLEROSIS [None]
  - GAIT DISTURBANCE [None]
  - MEMORY IMPAIRMENT [None]
  - URINARY INCONTINENCE [None]
  - ISCHAEMIC CEREBRAL INFARCTION [None]
  - VERTEBRAL ARTERY STENOSIS [None]
